FAERS Safety Report 10653519 (Version 1)
Quarter: 2014Q4

REPORT INFORMATION
  Report Type: Spontaneous
  Country: IN (occurrence: IN)
  Receive Date: 20141216
  Receipt Date: 20141216
  Transmission Date: 20150529
  Serious: Yes (Other)
  Sender: FDA-Public Use
  Company Number: IN-AUROBINDO-AUR-APL-2014-12918

PATIENT
  Age: 23 Year
  Sex: Male

DRUGS (1)
  1. FLUCONAZOLE 150MG [Suspect]
     Active Substance: FLUCONAZOLE
     Indication: TINEA CRURIS
     Dosage: 150 MG, EVERY WEEK
     Route: 065

REACTIONS (10)
  - Skin hyperpigmentation [Recovering/Resolving]
  - Dermatitis bullous [Recovering/Resolving]
  - Burning sensation [Unknown]
  - Erythema [Recovering/Resolving]
  - Penile ulceration [Recovering/Resolving]
  - Drug eruption [Recovering/Resolving]
  - Rash [Recovering/Resolving]
  - Pruritus [Unknown]
  - Blister [Recovering/Resolving]
  - Skin lesion [Recovering/Resolving]
